FAERS Safety Report 16908735 (Version 1)
Quarter: 2019Q4

REPORT INFORMATION
  Report Type: Spontaneous
  Country: US (occurrence: US)
  Receive Date: 20190820
  Receipt Date: 20190820
  Transmission Date: 20200122
  Serious: No
  Sender: FDA-Public Use
  Company Number: None

PATIENT

DRUGS (1)
  1. VITAMIN D [Suspect]
     Active Substance: VITAMIN D NOS

REACTIONS (4)
  - Product selection error [None]
  - Product dispensing error [None]
  - Incorrect dose administered [None]
  - Insurance issue [None]
